FAERS Safety Report 9010471 (Version 2)
Quarter: 2015Q1

REPORT INFORMATION
  Report Type: Spontaneous
  Country: FR (occurrence: FR)
  Receive Date: 20130109
  Receipt Date: 20150216
  Transmission Date: 20150721
  Serious: Yes (Hospitalization)
  Sender: FDA-Public Use
  Company Number: FR-ROCHE-1177722

PATIENT
  Age: 62 Year
  Sex: Female

DRUGS (2)
  1. VEMURAFENIB [Suspect]
     Active Substance: VEMURAFENIB
     Indication: PRODUCT USED FOR UNKNOWN INDICATION
     Dosage: DOSE: 4 DF?240 MG
     Route: 065
     Dates: start: 20120927, end: 20121008
  2. VEMURAFENIB [Suspect]
     Active Substance: VEMURAFENIB
     Dosage: 75% OF THE TOTAL DOSE
     Route: 065
     Dates: start: 20121010

REACTIONS (1)
  - Drug eruption [Recovered/Resolved]

NARRATIVE: CASE EVENT DATE: 20121008
